FAERS Safety Report 8009060-2 (Version None)
Quarter: 2011Q4

REPORT INFORMATION
  Report Type: 
  Country: None (occurrence: None)
  Receive Date: 20111227
  Receipt Date: 20111220
  Transmission Date: 20120403
  Serious: No
  Sender: FDA-Public Use
  Company Number: US-PFIZER INC-2011309589

PATIENT
  Sex: Female

DRUGS (5)
  1. FLECTOR [Suspect]
     Indication: BACK PAIN
     Dosage: UNK
     Dates: start: 20111207, end: 20111208
  2. KLONOPIN [Concomitant]
     Indication: SLEEP DISORDER
     Dosage: 0.5 MG, DAILY
  3. LISINOPRIL [Concomitant]
     Indication: HYPERTENSION
     Dosage: 5 MG, DAILY
  4. THERMACARE LOWER BACK + HIP [Suspect]
     Indication: BACK PAIN
     Dosage: UNK
     Dates: start: 20111101, end: 20110101
  5. OMEPRAZOLE [Concomitant]
     Indication: HYPERCHLORHYDRIA
     Dosage: 20 MG, DAILY

REACTIONS (2)
  - DEVICE INEFFECTIVE [None]
  - RASH [None]
